FAERS Safety Report 23930275 (Version 1)
Quarter: 2024Q2

REPORT INFORMATION
  Report Type: Spontaneous
  Country: TH (occurrence: TH)
  Receive Date: 20240602
  Receipt Date: 20240602
  Transmission Date: 20240715
  Serious: Yes (Other)
  Sender: FDA-Public Use
  Company Number: TH-SA-2024SA162043

PATIENT
  Age: 30 Year
  Sex: Male

DRUGS (2)
  1. DUPILUMAB [Suspect]
     Active Substance: DUPILUMAB
     Indication: Dermatitis atopic
     Dosage: 4 DOSES
  2. DUPILUMAB [Suspect]
     Active Substance: DUPILUMAB
     Dosage: UNK

REACTIONS (13)
  - Pulmonary tuberculosis [Recovered/Resolved]
  - Pyrexia [Recovered/Resolved]
  - Cough [Recovered/Resolved]
  - Chest pain [Recovered/Resolved]
  - Granuloma [Recovered/Resolved]
  - Necrosis [Recovered/Resolved]
  - Hilar lymphadenopathy [Recovered/Resolved]
  - Pulmonary mass [Recovered/Resolved]
  - Pleurisy [Recovered/Resolved]
  - Eosinophilic pleural effusion [Recovered/Resolved]
  - Dermatitis atopic [Recovered/Resolved]
  - Rebound effect [Recovered/Resolved]
  - Skin lesion [Recovered/Resolved]
